FAERS Safety Report 24414798 (Version 1)
Quarter: 2024Q4

REPORT INFORMATION
  Report Type: Spontaneous
  Country: US (occurrence: US)
  Receive Date: 20241009
  Receipt Date: 20241009
  Transmission Date: 20250114
  Serious: No
  Sender: Haleon PLC
  Company Number: US-HALEON-2200661

PATIENT
  Sex: Female

DRUGS (1)
  1. SENSODYNE CLINICAL WHITE STAIN PROTECTOR [Suspect]
     Active Substance: POTASSIUM NITRATE\SODIUM FLUORIDE
     Indication: Product used for unknown indication
     Dosage: EXPDATE:20270331
     Dates: start: 20240919, end: 20241003

REACTIONS (3)
  - Chapped lips [Unknown]
  - Lip exfoliation [Unknown]
  - Oral discomfort [Recovered/Resolved]
